FAERS Safety Report 13028475 (Version 1)
Quarter: 2016Q4

REPORT INFORMATION
  Report Type: Spontaneous
  Country: US (occurrence: US)
  Receive Date: 20161214
  Receipt Date: 20161214
  Transmission Date: 20170207
  Serious: Yes (Death, Hospitalization)
  Sender: FDA-Public Use
  Company Number: US-ALLERGAN-1680271US

PATIENT
  Age: 82 Year
  Sex: Female

DRUGS (2)
  1. ARICEPT [Concomitant]
     Active Substance: DONEPEZIL HYDROCHLORIDE
     Indication: DEMENTIA
     Dosage: UNK
     Route: 048
     Dates: end: 20160220
  2. NAMENDA XR [Suspect]
     Active Substance: MEMANTINE HYDROCHLORIDE
     Indication: DEMENTIA
     Dosage: 28 MG, QD
     Route: 048
     Dates: end: 20160220

REACTIONS (4)
  - Urinary tract infection [Unknown]
  - Off label use [Unknown]
  - Dementia [Fatal]
  - Pneumonia [Unknown]

NARRATIVE: CASE EVENT DATE: 2016
